FAERS Safety Report 4854792-8 (Version None)
Quarter: 2005Q4

REPORT INFORMATION
  Report Type: 
  Country: None (occurrence: None)
  Receive Date: 20051214
  Receipt Date: 20051214
  Transmission Date: 20060501
  Serious: Yes (Life-Threatening)
  Sender: FDA-Public Use
  Company Number: None

PATIENT
  Age: 66 Year
  Sex: Male
  Weight: 88.905 kg

DRUGS (2)
  1. BENZOCAINE TOPICAL SPRAY 20% [Suspect]
     Indication: LOCAL ANAESTHESIA
     Dosage: SPRAY ONCE TOP
     Route: 061
     Dates: start: 20030418, end: 20030418
  2. LIDOCAINE VISCOUS [Suspect]
     Indication: LOCAL ANAESTHESIA
     Dosage: TOPICAL ONCE TOP
     Route: 061
     Dates: start: 20030418, end: 20030418

REACTIONS (5)
  - BLOOD PH INCREASED [None]
  - CYANOSIS [None]
  - METHAEMOGLOBINAEMIA [None]
  - PO2 INCREASED [None]
  - POST PROCEDURAL COMPLICATION [None]
